FAERS Safety Report 25990483 (Version 1)
Quarter: 2025Q4

REPORT INFORMATION
  Report Type: Spontaneous
  Country: US (occurrence: US)
  Receive Date: 20251103
  Receipt Date: 20251103
  Transmission Date: 20260117
  Serious: No
  Sender: NOVARTIS
  Company Number: US-002147023-NVSC2025US164941

PATIENT
  Sex: Female

DRUGS (2)
  1. TAFINLAR [Suspect]
     Active Substance: DABRAFENIB MESYLATE
     Indication: Lung carcinoma cell type unspecified stage I
     Dosage: 150 MG, Q12H
     Route: 048
     Dates: start: 202510
  2. MEKINIST [Suspect]
     Active Substance: TRAMETINIB DIMETHYL SULFOXIDE
     Indication: Lung carcinoma cell type unspecified stage I
     Dosage: 2 MG, QD
     Route: 048
     Dates: start: 202510

REACTIONS (5)
  - Fatigue [Unknown]
  - Constipation [Unknown]
  - Faeces hard [Unknown]
  - Dyschezia [Unknown]
  - Infrequent bowel movements [Unknown]
